FAERS Safety Report 16196144 (Version 1)
Quarter: 2019Q2

REPORT INFORMATION
  Report Type: Spontaneous
  Country: DE (occurrence: DE)
  Receive Date: 20190415
  Receipt Date: 20190415
  Transmission Date: 20190711
  Serious: Yes (Congenital Anomaly, Other)
  Sender: FDA-Public Use
  Company Number: DE-AUROBINDO-AUR-APL-2019-019238

PATIENT

DRUGS (1)
  1. QUETIAPINE. [Suspect]
     Active Substance: QUETIAPINE
     Indication: BIPOLAR DISORDER
     Dosage: 450 MILLIGRAM, ONCE A DAY, 450 [MG/D ]
     Route: 064

REACTIONS (3)
  - Hydrocele [Recovered/Resolved]
  - Foetal exposure during pregnancy [Unknown]
  - Junctional ectopic tachycardia [Not Recovered/Not Resolved]

NARRATIVE: CASE EVENT DATE: 20180705
